FAERS Safety Report 18337882 (Version 3)
Quarter: 2020Q4

REPORT INFORMATION
  Report Type: Other
  Country: GB (occurrence: GB)
  Receive Date: 20201002
  Receipt Date: 20201111
  Transmission Date: 20210113
  Serious: Yes (Other)
  Sender: FDA-Public Use
  Company Number: GB-ROCHE-2688994

PATIENT
  Age: 60 Year
  Sex: Male

DRUGS (1)
  1. OMALIZUMAB. [Suspect]
     Active Substance: OMALIZUMAB
     Indication: ASTHMA
     Route: 065

REACTIONS (1)
  - Eosinophilic granulomatosis with polyangiitis [Not Recovered/Not Resolved]
